FAERS Safety Report 19890339 (Version 4)
Quarter: 2021Q4

REPORT INFORMATION
  Report Type: Report from Study
  Country: CA (occurrence: CA)
  Receive Date: 20210927
  Receipt Date: 20211123
  Transmission Date: 20220303
  Serious: Yes (Hospitalization, Other)
  Sender: FDA-Public Use
  Company Number: CA-OTSUKA-2021_030851

PATIENT
  Age: 73 Year
  Sex: Female

DRUGS (1)
  1. CEDAZURIDINE\DECITABINE [Suspect]
     Active Substance: CEDAZURIDINE\DECITABINE
     Indication: Myelodysplastic syndrome
     Dosage: 135 MG, QD (FOR 5 DAYS OF THE 28 DAY CYCLE)
     Route: 065
     Dates: start: 20210823, end: 20211116

REACTIONS (5)
  - Kidney infection [Unknown]
  - Lung disorder [Unknown]
  - Biopsy bone marrow [Unknown]
  - Pneumonia [Unknown]
  - Bladder spasm [Recovering/Resolving]

NARRATIVE: CASE EVENT DATE: 20210901
